FAERS Safety Report 23369433 (Version 1)
Quarter: 2024Q1

REPORT INFORMATION
  Report Type: Spontaneous
  Country: FR (occurrence: FR)
  Receive Date: 20240105
  Receipt Date: 20240105
  Transmission Date: 20240410
  Serious: Yes (Life-Threatening)
  Sender: FDA-Public Use
  Company Number: FR-SUN PHARMACEUTICAL INDUSTRIES LTD-2023RR-425846

PATIENT
  Age: 46 Year
  Sex: Female
  Weight: 80 kg

DRUGS (14)
  1. MORPHINE [Suspect]
     Active Substance: MORPHINE
     Indication: Analgesic therapy
     Dosage: 1 MILLIGRAM, IN TOTAL
     Route: 040
     Dates: start: 20200106, end: 20200106
  2. NOREPINEPHRINE [Suspect]
     Active Substance: NOREPINEPHRINE
     Indication: Vasopressive therapy
     Dosage: 4.6 MCG, 1DOSE/MIN
     Route: 040
     Dates: start: 20200106, end: 20200106
  3. ROPIVACAINE HYDROCHLORIDE [Suspect]
     Active Substance: ROPIVACAINE HYDROCHLORIDE
     Indication: Local anaesthesia
     Dosage: 2 MILLIGRAM, IN TOTAL
     Route: 014
     Dates: start: 20200106, end: 20200106
  4. DESFLURANE [Suspect]
     Active Substance: DESFLURANE
     Indication: Anaesthesia
     Dosage: UNK
     Route: 055
     Dates: start: 20200106, end: 20200106
  5. XYLOCAINE [Suspect]
     Active Substance: LIDOCAINE HYDROCHLORIDE
     Indication: Local anaesthesia
     Dosage: 10 MILLILITER, IN TOTAL
     Route: 014
     Dates: start: 20200106, end: 20200106
  6. BRIDION [Suspect]
     Active Substance: SUGAMMADEX
     Indication: Neuromuscular blockade reversal
     Dosage: 500 MILLIGRAM, IN TOTAL
     Route: 040
     Dates: start: 20200106, end: 20200106
  7. PERFALGAN [Suspect]
     Active Substance: ACETAMINOPHEN
     Indication: Analgesic intervention supportive therapy
     Dosage: 1 MILLIGRAM, IN TOTAL
     Route: 040
     Dates: start: 20200106, end: 20200106
  8. ROCURONIUM BROMIDE [Suspect]
     Active Substance: ROCURONIUM BROMIDE
     Indication: Neuromuscular blocking therapy
     Dosage: 100 MILLIGRAM, IN TOTAL
     Route: 040
     Dates: start: 20200106, end: 20200106
  9. CEFAZOLIN SODIUM [Suspect]
     Active Substance: CEFAZOLIN SODIUM
     Indication: Infection prophylaxis
     Dosage: 2 GRAM, IN TOTAL
     Route: 040
     Dates: start: 20200106, end: 20200106
  10. PROPOFOL [Suspect]
     Active Substance: PROPOFOL
     Indication: Induction of anaesthesia
     Dosage: 400 MILLIGRAM, IN TOTAL
     Route: 040
     Dates: start: 20200106, end: 20200106
  11. KETOPROFEN [Suspect]
     Active Substance: KETOPROFEN
     Indication: Product used for unknown indication
     Dosage: 100 MILLIGRAM, IN TOTAL
     Route: 040
     Dates: start: 20200106, end: 20200106
  12. ONDANSETRON [Suspect]
     Active Substance: ONDANSETRON
     Indication: Prophylaxis of nausea and vomiting
     Dosage: 4 MILLIGRAM, IN TOTAL
     Route: 040
     Dates: start: 20200106, end: 20200106
  13. SUFENTANIL [Suspect]
     Active Substance: SUFENTANIL
     Indication: Induction of anaesthesia
     Dosage: 40 MCG, IN TOTAL
     Route: 040
     Dates: start: 20200106, end: 20200106
  14. LEVOTHYROXINE [Concomitant]
     Active Substance: LEVOTHYROXINE
     Indication: Product used for unknown indication
     Dosage: UNK
     Route: 065

REACTIONS (1)
  - Anaphylactic shock [Recovered/Resolved with Sequelae]

NARRATIVE: CASE EVENT DATE: 20200106
